FAERS Safety Report 9900945 (Version 1)
Quarter: 2014Q1

REPORT INFORMATION
  Report Type: Report from Study
  Country: US (occurrence: US)
  Receive Date: 20140217
  Receipt Date: 20140217
  Transmission Date: 20141002
  Serious: No
  Sender: FDA-Public Use
  Company Number: US-ABBVIE-13P-163-1141133-00

PATIENT
  Sex: Male

DRUGS (3)
  1. SIMCOR 500/20 [Suspect]
     Indication: BLOOD TRIGLYCERIDES ABNORMAL
     Dosage: 500/20 MG
     Dates: start: 201304
  2. SIMCOR 500/20 [Suspect]
     Indication: TOTAL CHOLESTEROL/HDL RATIO ABNORMAL
  3. ASPIRIN [Concomitant]
     Indication: PRODUCT USED FOR UNKNOWN INDICATION

REACTIONS (3)
  - Hot flush [Not Recovered/Not Resolved]
  - Urticaria [Not Recovered/Not Resolved]
  - Myalgia [Not Recovered/Not Resolved]
